FAERS Safety Report 16835013 (Version 4)
Quarter: 2024Q1

REPORT INFORMATION
  Report Type: Spontaneous
  Country: US (occurrence: US)
  Receive Date: 20190920
  Receipt Date: 20240118
  Transmission Date: 20240410
  Serious: Yes (Hospitalization, Other)
  Sender: FDA-Public Use
  Company Number: US-GILEAD-2019-0429305

PATIENT
  Age: 34 Year
  Sex: Male
  Weight: 93.878 kg

DRUGS (29)
  1. ATRIPLA [Suspect]
     Active Substance: EFAVIRENZ\EMTRICITABINE\TENOFOVIR DISOPROXIL FUMARATE
     Indication: HIV infection
     Dosage: UNK
     Route: 048
     Dates: start: 2006, end: 2018
  2. ATRIPLA [Suspect]
     Active Substance: EFAVIRENZ\EMTRICITABINE\TENOFOVIR DISOPROXIL FUMARATE
     Dosage: UNK
     Route: 048
     Dates: start: 20081024, end: 20110604
  3. STRIBILD [Suspect]
     Active Substance: COBICISTAT\ELVITEGRAVIR\EMTRICITABINE\TENOFOVIR DISOPROXIL FUMARATE
     Indication: HIV infection
     Dosage: UNK
     Route: 065
     Dates: start: 20141030
  4. STRIBILD [Suspect]
     Active Substance: COBICISTAT\ELVITEGRAVIR\EMTRICITABINE\TENOFOVIR DISOPROXIL FUMARATE
     Dosage: UNK
     Route: 048
     Dates: start: 20141030
  5. ODEFSEY [Concomitant]
     Active Substance: EMTRICITABINE\RILPIVIRINE HYDROCHLORIDE\TENOFOVIR ALAFENAMIDE FUMARATE
     Dosage: UNK
     Dates: start: 201707
  6. LISINOPRIL [Concomitant]
     Active Substance: LISINOPRIL
  7. HYDROCHLOROTHIAZIDE [Concomitant]
     Active Substance: HYDROCHLOROTHIAZIDE
  8. METOPROLOL [Concomitant]
     Active Substance: METOPROLOL
  9. SEVELAMER [Concomitant]
     Active Substance: SEVELAMER
  10. LACTULOSE [Concomitant]
     Active Substance: LACTULOSE
  11. AMLODIPINE [Concomitant]
     Active Substance: AMLODIPINE BESYLATE
  12. PREDNISONE [Concomitant]
     Active Substance: PREDNISONE
  13. EDURANT [Concomitant]
     Active Substance: RILPIVIRINE HYDROCHLORIDE
  14. ISENTRESS [Concomitant]
     Active Substance: RALTEGRAVIR POTASSIUM
  15. REYATAZ [Concomitant]
     Active Substance: ATAZANAVIR SULFATE
  16. TRIUMEQ [Concomitant]
     Active Substance: ABACAVIR SULFATE\DOLUTEGRAVIR SODIUM\LAMIVUDINE
  17. NORVASC [Concomitant]
     Active Substance: AMLODIPINE BESYLATE
  18. TRAZODONE [Concomitant]
     Active Substance: TRAZODONE HYDROCHLORIDE
  19. METOPROLOL SUCCINATE [Concomitant]
     Active Substance: METOPROLOL SUCCINATE
  20. GABAPENTIN [Concomitant]
     Active Substance: GABAPENTIN
  21. SERTRALINE [Concomitant]
     Active Substance: SERTRALINE HYDROCHLORIDE
  22. AZITHROMYCIN [Concomitant]
     Active Substance: AZITHROMYCIN
  23. IBUPROFEN [Concomitant]
     Active Substance: IBUPROFEN
  24. ALBUTEROL SULFATE [Concomitant]
     Active Substance: ALBUTEROL SULFATE
  25. BENZONATATE [Concomitant]
     Active Substance: BENZONATATE
  26. OXYCODONE AND ACETAMINOPHEN [Concomitant]
     Active Substance: ACETAMINOPHEN\OXYCODONE HYDROCHLORIDE
  27. ZOLPIDEM [Concomitant]
     Active Substance: ZOLPIDEM TARTRATE
  28. SEVELAMER CARBONATE [Concomitant]
     Active Substance: SEVELAMER CARBONATE
  29. AMLODIPINE BESYLATE [Concomitant]
     Active Substance: AMLODIPINE BESYLATE

REACTIONS (13)
  - Renal failure [Recovered/Resolved]
  - Renal failure [Recovered/Resolved]
  - End stage renal disease [Not Recovered/Not Resolved]
  - Chronic kidney disease [Not Recovered/Not Resolved]
  - Renal impairment [Unknown]
  - Loss of personal independence in daily activities [Not Recovered/Not Resolved]
  - Emotional distress [Not Recovered/Not Resolved]
  - Anhedonia [Not Recovered/Not Resolved]
  - Economic problem [Not Recovered/Not Resolved]
  - Anxiety [Not Recovered/Not Resolved]
  - Pain [Not Recovered/Not Resolved]
  - Fatigue [Unknown]
  - Depression [Not Recovered/Not Resolved]

NARRATIVE: CASE EVENT DATE: 20150101
